FAERS Safety Report 4838947-4 (Version None)
Quarter: 2005Q4

REPORT INFORMATION
  Report Type: 
  Country: None (occurrence: None)
  Receive Date: 20051024
  Receipt Date: 20050927
  Transmission Date: 20060501
  Serious: No
  Sender: FDA-Public Use
  Company Number: 217765

PATIENT
  Age: 57 Year
  Sex: Female

DRUGS (12)
  1. XOLAIR [Suspect]
     Indication: ASTHMA
     Dosage: 300 MG,Q2W, SUBCUTANEOUS
     Route: 058
     Dates: start: 20050502
  2. NASONEX [Concomitant]
  3. ADVAIR (FLUITCASONE PROPIONATE, SALMETEROL XINAFOATE) [Concomitant]
  4. SINGULAIR [Concomitant]
  5. COMBIVENT (ALBUTEROL, ALBUTEROL SULFATE, IPRATROPIUM BROMIDE) [Concomitant]
  6. LASIX [Concomitant]
  7. POTASSIUM CHLORIDE [Concomitant]
  8. PREMARIN [Concomitant]
  9. LEVOTHYROXINE SODIUM [Concomitant]
  10. ACCUPRIL [Concomitant]
  11. PRILOSEC [Concomitant]
  12. LIPITOR [Concomitant]

REACTIONS (2)
  - PHARYNGEAL OEDEMA [None]
  - SWELLING FACE [None]
